FAERS Safety Report 6030856-0 (Version None)
Quarter: 2009Q1

REPORT INFORMATION
  Report Type: 
  Country: None (occurrence: None)
  Receive Date: 20090106
  Receipt Date: 20081229
  Transmission Date: 20090719
  Serious: Yes (Hospitalization)
  Sender: FDA-Public Use
  Company Number: 2008SP002401

PATIENT
  Age: 20 Year
  Sex: Female

DRUGS (3)
  1. LUNESTA [Suspect]
     Indication: ANXIETY
     Dosage: 0.3 MG;TID;ORAL
     Route: 048
     Dates: start: 20080805, end: 20081001
  2. HYDROCODONE [Concomitant]
  3. IBUPROFEN [Concomitant]

REACTIONS (5)
  - AMNIOCENTESIS ABNORMAL [None]
  - DRUG EXPOSURE DURING PREGNANCY [None]
  - INFECTION [None]
  - INTRA-UTERINE DEATH [None]
  - PREGNANCY TEST POSITIVE [None]
